FAERS Safety Report 18044550 (Version 3)
Quarter: 2020Q3

REPORT INFORMATION
  Report Type: Spontaneous
  Country: US (occurrence: US)
  Receive Date: 20200720
  Receipt Date: 20200810
  Transmission Date: 20201103
  Serious: No
  Sender: FDA-Public Use
  Company Number: US-ALKERMES INC.-ALK-2020-002862

PATIENT
  Age: 66 Year
  Sex: Female
  Weight: 68.93 kg

DRUGS (6)
  1. VIVITROL [Suspect]
     Active Substance: NALTREXONE
     Indication: ALCOHOL ABUSE
     Dosage: 380 MILLIGRAM, QMO
     Route: 050
     Dates: start: 20200624, end: 20200624
  2. CLONIDINE. [Concomitant]
     Active Substance: CLONIDINE
     Indication: ALCOHOL ABUSE
     Dosage: UNK
     Route: 065
     Dates: start: 20200611
  3. VIVITROL [Suspect]
     Active Substance: NALTREXONE
     Indication: ALCOHOLISM
     Dosage: 380 MILLIGRAM, QMO
     Route: 030
     Dates: start: 20200722
  4. VIVITROL [Suspect]
     Active Substance: NALTREXONE
     Indication: ALCOHOL WITHDRAWAL SYNDROME
  5. CHLORDIAZEPOXIDE. [Concomitant]
     Active Substance: CHLORDIAZEPOXIDE
     Indication: ALCOHOL ABUSE
     Dosage: UNK
     Route: 065
     Dates: start: 20200611
  6. NAMENDA [Concomitant]
     Active Substance: MEMANTINE HYDROCHLORIDE
     Indication: VASCULAR DEMENTIA
     Dosage: UNK
     Route: 065
     Dates: start: 20200722

REACTIONS (9)
  - Product administered at inappropriate site [Recovered/Resolved]
  - Wrong technique in product usage process [Recovered/Resolved]
  - Amnesia [Recovered/Resolved]
  - Feeling drunk [Recovered/Resolved]
  - Hypersomnia [Recovered/Resolved]
  - Dementia Alzheimer^s type [Recovered/Resolved]
  - Abnormal behaviour [Not Recovered/Not Resolved]
  - Gait disturbance [Recovered/Resolved]
  - Hallucination, visual [Recovered/Resolved]

NARRATIVE: CASE EVENT DATE: 2020
